FAERS Safety Report 23363253 (Version 1)
Quarter: 2024Q1

REPORT INFORMATION
  Report Type: Other
  Country: None (occurrence: CN)
  Receive Date: 20240103
  Receipt Date: 20240103
  Transmission Date: 20240410
  Serious: Yes (Life-Threatening, Hospitalization)
  Sender: FDA-Public Use
  Company Number: CN-B.Braun Medical Inc.-2150096

PATIENT
  Age: 49 Year
  Sex: Female

DRUGS (7)
  1. MEROPENEM\SODIUM CHLORIDE [Suspect]
     Active Substance: MEROPENEM\SODIUM CHLORIDE
     Indication: Infection
     Route: 042
  2. FLUCONAZOLE [Suspect]
     Active Substance: FLUCONAZOLE
  3. CASPOFUNGIN [Suspect]
     Active Substance: CASPOFUNGIN
  4. VANCOMYCIN [Suspect]
     Active Substance: VANCOMYCIN
  5. IMATINIB MESYLATE [Concomitant]
     Active Substance: IMATINIB MESYLATE
  6. IDARUBICIN [Concomitant]
     Active Substance: IDARUBICIN
  7. CYTARABINE [Concomitant]
     Active Substance: CYTARABINE

REACTIONS (1)
  - Drug ineffective [None]
